FAERS Safety Report 5588778-5 (Version None)
Quarter: 2008Q1

REPORT INFORMATION
  Report Type: 
  Country: None (occurrence: None)
  Receive Date: 20080111
  Receipt Date: 20080110
  Transmission Date: 20080703
  Serious: Yes (Other)
  Sender: FDA-Public Use
  Company Number: B0501762A

PATIENT
  Age: 78 Year
  Sex: Female
  Weight: 52 kg

DRUGS (17)
  1. PAXIL [Suspect]
     Indication: DEPRESSION
     Dosage: 10MG TWICE PER DAY
     Route: 048
     Dates: start: 20010305, end: 20071217
  2. BEPRICOR [Suspect]
     Indication: ATRIAL FIBRILLATION
     Dosage: 100MG TWICE PER DAY
     Route: 048
     Dates: start: 20071105
  3. DEPAS [Concomitant]
     Indication: DEPRESSION
     Dosage: .5MG PER DAY
     Route: 048
     Dates: start: 20010709
  4. THYRADIN [Concomitant]
     Dosage: 50MCG PER DAY
     Route: 048
     Dates: start: 20010817, end: 20071224
  5. RIZE [Concomitant]
     Indication: ANXIETY DISORDER
     Dosage: 15MG PER DAY
     Route: 048
     Dates: start: 20011022
  6. WARFARIN SODIUM [Concomitant]
     Indication: ATRIAL FIBRILLATION
     Dosage: 3MG PER DAY
     Route: 048
     Dates: start: 20060925
  7. WARFARIN SODIUM [Concomitant]
     Dosage: .5MG PER DAY
     Route: 048
     Dates: start: 20060616
  8. RYTHMODAN [Concomitant]
     Indication: ATRIAL FIBRILLATION
     Dosage: 300MG PER DAY
     Route: 048
     Dates: start: 20000811, end: 20010524
  9. RYTHMODAN [Concomitant]
     Dosage: 450MG PER DAY
     Route: 048
     Dates: start: 20071009, end: 20071104
  10. RYTHMODAN [Concomitant]
     Dosage: 300MG PER DAY
     Route: 048
     Dates: start: 20070813, end: 20071008
  11. RYTHMODAN [Concomitant]
     Dosage: 300MG PER DAY
     Route: 048
     Dates: start: 20070813, end: 20071008
  12. RIZE [Concomitant]
     Dosage: 10MG PER DAY
     Route: 048
     Dates: start: 20070817, end: 20071021
  13. SUNRYTHM [Concomitant]
     Indication: ATRIAL FIBRILLATION
     Dosage: 150MG PER DAY
     Route: 048
     Dates: start: 20070629, end: 20070812
  14. WARFARIN SODIUM [Concomitant]
     Dosage: 2MG PER DAY
     Route: 048
  15. WARFARIN SODIUM [Concomitant]
     Dosage: .5MG PER DAY
     Route: 048
     Dates: start: 20071009
  16. THYRADIN [Concomitant]
     Dosage: 25MCG PER DAY
     Route: 048
     Dates: start: 20011022, end: 20071224
  17. THYRADIN [Concomitant]
     Dosage: 100MCG PER DAY
     Route: 048
     Dates: start: 20071225

REACTIONS (2)
  - DRUG INTERACTION [None]
  - ELECTROCARDIOGRAM QT PROLONGED [None]
